FAERS Safety Report 9905593 (Version 1)
Quarter: 2014Q1

REPORT INFORMATION
  Report Type: Spontaneous
  Country: DE (occurrence: DE)
  Receive Date: 20140218
  Receipt Date: 20140218
  Transmission Date: 20141002
  Serious: Yes (Disabling)
  Sender: FDA-Public Use
  Company Number: DE-GLAXOSMITHKLINE-D0082875A

PATIENT
  Age: 4 Year
  Sex: Female
  Weight: 18 kg

DRUGS (2)
  1. VIANI MITE [Suspect]
     Indication: ASTHMA
     Route: 055
     Dates: start: 20131031, end: 201401
  2. INFECTOKRUPP [Suspect]
     Indication: ASTHMA
     Route: 065

REACTIONS (1)
  - Cataract [Unknown]
